FAERS Safety Report 10210236 (Version 1)
Quarter: 2014Q2

REPORT INFORMATION
  Report Type: Spontaneous
  Country: IT (occurrence: IT)
  Receive Date: 20140602
  Receipt Date: 20140602
  Transmission Date: 20141212
  Serious: Yes (Hospitalization)
  Sender: FDA-Public Use
  Company Number: IT-JNJFOC-20140513747

PATIENT
  Age: 46 Year
  Sex: Female

DRUGS (2)
  1. SERENASE [Suspect]
     Indication: PSYCHOMOTOR HYPERACTIVITY
     Route: 048
     Dates: start: 20140516, end: 20140517
  2. XANAX [Concomitant]
     Indication: DEPRESSION
     Route: 048
     Dates: start: 20140301, end: 20140517

REACTIONS (4)
  - Blood creatine phosphokinase increased [Recovering/Resolving]
  - Bradykinesia [Recovering/Resolving]
  - Hypertonia [Recovering/Resolving]
  - Tremor [Recovering/Resolving]
